FAERS Safety Report 21065342 (Version 1)
Quarter: 2022Q3

REPORT INFORMATION
  Report Type: Spontaneous
  Country: CN (occurrence: CN)
  Receive Date: 20220711
  Receipt Date: 20220711
  Transmission Date: 20221027
  Serious: Yes (Other)
  Sender: FDA-Public Use
  Company Number: CN-CHIESI-2022CHF03410

PATIENT
  Sex: Male
  Weight: 2.8 kg

DRUGS (1)
  1. CUROSURF [Suspect]
     Active Substance: PORACTANT ALFA
     Indication: Neonatal respiratory distress syndrome
     Dosage: UNK

REACTIONS (5)
  - Neonatal respiratory acidosis [Recovered/Resolved]
  - Dysphoria [Recovered/Resolved]
  - Tremor [Recovered/Resolved]
  - Foaming at mouth [Recovered/Resolved]
  - Pyrexia [Recovered/Resolved]
